FAERS Safety Report 7544491-6 (Version None)
Quarter: 2011Q2

REPORT INFORMATION
  Report Type: 
  Country: None (occurrence: None)
  Receive Date: 20110613
  Receipt Date: 20100727
  Transmission Date: 20111010
  Serious: Yes (Hospitalization, Other)
  Sender: FDA-Public Use
  Company Number: PHNU2008DE00801

PATIENT
  Sex: Female
  Weight: 56 kg

DRUGS (15)
  1. ZOMETA [Suspect]
     Indication: METASTASES TO BONE
     Dosage: 4 MG, UNK
     Route: 042
     Dates: start: 20071019, end: 20090106
  2. RAMIPRIL [Concomitant]
     Dosage: 1 DF, QD
  3. NEXIUM [Concomitant]
     Dosage: 1 DF, QD
  4. BERODUAL [Concomitant]
  5. TRAMADOL HYDROCHLORIDE [Concomitant]
     Dosage: 1 DF, QD
  6. IRINOTECAN HYDROCHLORIDE [Concomitant]
     Indication: RECTAL CANCER
     Dosage: 126 MG, UNK
     Route: 042
     Dates: start: 20071025, end: 20080110
  7. ACETYLCYSTEINE [Concomitant]
     Dosage: 1 DF, QD
  8. PULMICORT [Concomitant]
     Dosage: 1 DF, QD
  9. ASPIRIN [Concomitant]
     Dosage: 1 DF, QD
  10. ZOMETA [Suspect]
     Indication: RECTAL CANCER
     Dosage: 4 MG, UNK
     Route: 042
     Dates: start: 20090512
  11. AVASTIN [Concomitant]
     Indication: METASTASES TO BONE
     Dosage: 280 MG, UNK
     Route: 042
     Dates: start: 20071025, end: 20080801
  12. FLUOROURACIL [Concomitant]
     Indication: RECTAL CANCER
     Dosage: 3160 MG, UNK
     Route: 042
     Dates: start: 20071025, end: 20080110
  13. FOLFIRI [Concomitant]
     Dates: start: 20071025
  14. LEVOTHYROXINE SODIUM [Concomitant]
     Dosage: 1 DF, QD
  15. FOLIC ACID [Concomitant]
     Indication: RECTAL CANCER
     Dosage: 790 MG, UNK
     Route: 042
     Dates: start: 20071025, end: 20080110

REACTIONS (15)
  - ANAL HAEMORRHAGE [None]
  - NEOPLASM MALIGNANT [None]
  - INFECTIVE EXACERBATION OF CHRONIC OBSTRUCTIVE AIRWAYS DISEASE [None]
  - SEPSIS [None]
  - COLITIS ISCHAEMIC [None]
  - RECTAL HAEMORRHAGE [None]
  - METASTASES TO LUNG [None]
  - INTESTINAL PERFORATION [None]
  - ILIUM FRACTURE [None]
  - TRACHEOBRONCHITIS [None]
  - ABDOMINAL PAIN [None]
  - PERITONITIS [None]
  - DYSPNOEA [None]
  - MUCOSAL INFLAMMATION [None]
  - METASTASES TO BONE [None]
